FAERS Safety Report 8126737 (Version 7)
Quarter: 2013Q4

REPORT INFORMATION
  Report Type: Spontaneous
  Country: US (occurrence: US)
  Receive Date: 20110908
  Receipt Date: 20131016
  Transmission Date: 20140711
  Serious: Yes (Other)
  Sender: FDA-Public Use
  Company Number: US-ASTRAZENECA-2011SE06845

PATIENT
  Age: 69 Year
  Sex: Female

DRUGS (14)
  1. NEXIUM [Suspect]
     Route: 048
  2. SEROQUEL [Suspect]
     Indication: ANXIETY
     Route: 048
  3. SEROQUEL [Suspect]
     Indication: DEPRESSION
     Route: 048
  4. SEROQUEL [Suspect]
     Indication: ANXIETY
     Route: 048
  5. SEROQUEL [Suspect]
     Indication: DEPRESSION
     Route: 048
  6. SEROQUEL [Suspect]
     Indication: ANXIETY
     Route: 048
  7. SEROQUEL [Suspect]
     Indication: DEPRESSION
     Route: 048
  8. SEROQUEL [Suspect]
     Indication: ANXIETY
     Route: 048
  9. SEROQUEL [Suspect]
     Indication: DEPRESSION
     Route: 048
  10. SEROQUEL [Suspect]
     Indication: ANXIETY
     Route: 048
     Dates: start: 2009
  11. SEROQUEL [Suspect]
     Indication: DEPRESSION
     Route: 048
     Dates: start: 2009
  12. CRESTOR [Suspect]
     Route: 048
  13. CPAP MACHINE [Concomitant]
  14. KLONOPIN [Concomitant]
     Indication: ANXIETY

REACTIONS (18)
  - Suicidal ideation [Unknown]
  - Somnolence [Unknown]
  - Anxiety [Unknown]
  - Road traffic accident [Unknown]
  - Agitation [Unknown]
  - Emotional distress [Unknown]
  - Sleep apnoea syndrome [Unknown]
  - Throat tightness [Unknown]
  - Dyspnoea [Unknown]
  - Blood cholesterol increased [Unknown]
  - Dysphagia [Unknown]
  - Depression [Unknown]
  - Palpitations [Unknown]
  - Abdominal pain upper [Unknown]
  - Restlessness [Unknown]
  - Malaise [Unknown]
  - Influenza [Unknown]
  - Drug dose omission [Unknown]
